FAERS Safety Report 11377263 (Version 1)
Quarter: 2015Q3

REPORT INFORMATION
  Report Type: Spontaneous
  Country: US (occurrence: US)
  Receive Date: 20150811
  Receipt Date: 20150811
  Transmission Date: 20151125
  Serious: No
  Sender: FDA-Public Use
  Company Number: US-ELI_LILLY_AND_COMPANY-US200810007650

PATIENT
  Sex: Female

DRUGS (3)
  1. HUMULIN R [Suspect]
     Active Substance: INSULIN HUMAN
     Dosage: UNK, UNK
     Dates: start: 1993
  2. HUMULIN R [Suspect]
     Active Substance: INSULIN HUMAN
  3. HUMULIN N [Suspect]
     Active Substance: INSULIN HUMAN

REACTIONS (2)
  - Incorrect dose administered [Unknown]
  - Intercepted product selection error [Unknown]

NARRATIVE: CASE EVENT DATE: 2003
